FAERS Safety Report 5811623-7 (Version None)
Quarter: 2008Q3

REPORT INFORMATION
  Report Type: 
  Country: None (occurrence: None)
  Receive Date: 20080711
  Receipt Date: 20080711
  Transmission Date: 20090109
  Serious: Yes (Other)
  Sender: FDA-Public Use
  Company Number: None

PATIENT
  Age: 49 Year
  Sex: Female
  Weight: 49.8957 kg

DRUGS (2)
  1. BIAXIN [Suspect]
     Indication: HELICOBACTER INFECTION
     Dosage: 3/DAY ORALLY
     Route: 048
  2. FLAGYL [Suspect]
     Indication: HELICOBACTER INFECTION
     Dosage: 3/DAY ORALLY
     Route: 048

REACTIONS (3)
  - DISEASE RECURRENCE [None]
  - HELICOBACTER INFECTION [None]
  - SYSTEMIC CANDIDA [None]
